FAERS Safety Report 7204961-7 (Version None)
Quarter: 2010Q4

REPORT INFORMATION
  Report Type: 
  Country: None (occurrence: None)
  Receive Date: 20101230
  Receipt Date: 20100122
  Transmission Date: 20110411
  Serious: Yes (Hospitalization)
  Sender: FDA-Public Use
  Company Number: CH-NAPPMUNDI-DEU-2010-0006828

PATIENT
  Age: 48 Year
  Sex: Female
  Weight: 51 kg

DRUGS (11)
  1. OXYCODONE HYDROCHLORIDE [Suspect]
     Indication: PRODUCT USED FOR UNKNOWN INDICATION
     Dosage: 5 MG, BID
     Route: 048
     Dates: start: 20101201, end: 20101203
  2. SIRALUD [Suspect]
  3. LYRICA [Suspect]
  4. CITALOPRAM [Suspect]
  5. CLORAZEPATE DIPOTASSIUM [Concomitant]
  6. DAFALGAN [Concomitant]
  7. METAMIZOLE [Concomitant]
  8. NEXIUM [Concomitant]
  9. IMPORTAL [Concomitant]
  10. FOLIC ACID [Concomitant]
  11. BULBOID [Concomitant]

REACTIONS (2)
  - BLOOD PRESSURE SYSTOLIC DECREASED [None]
  - BRADYCARDIA [None]
